FAERS Safety Report 14148195 (Version 1)
Quarter: 2017Q4

REPORT INFORMATION
  Report Type: Spontaneous
  Country: FR (occurrence: FR)
  Receive Date: 20171101
  Receipt Date: 20171101
  Transmission Date: 20180321
  Serious: Yes (Other)
  Sender: FDA-Public Use
  Company Number: FR-MERCK KGAA-2032935

PATIENT
  Age: 68 Year
  Sex: Female

DRUGS (5)
  1. LEVOTHYROX [Suspect]
     Active Substance: LEVOTHYROXINE
  2. AVLOCARDYL [Concomitant]
     Active Substance: PROPRANOLOL HYDROCHLORIDE
  3. NOVOTHYROX [Suspect]
     Active Substance: LEVOTHYROXINE SODIUM
     Indication: HYPOTHYROIDISM
  4. OMEPRAZOLE. [Concomitant]
     Active Substance: OMEPRAZOLE
  5. VOLTARENE [Concomitant]
     Active Substance: DICLOFENAC SODIUM

REACTIONS (11)
  - Hyperhidrosis [Not Recovered/Not Resolved]
  - Eye pain [None]
  - Nausea [None]
  - Urine output decreased [None]
  - Hot flush [Not Recovered/Not Resolved]
  - Hyperthyroidism [None]
  - Fatigue [Not Recovered/Not Resolved]
  - Arthralgia [None]
  - Blood thyroid stimulating hormone increased [Not Recovered/Not Resolved]
  - Malaise [None]
  - Headache [Not Recovered/Not Resolved]

NARRATIVE: CASE EVENT DATE: 201705
